FAERS Safety Report 21610382 (Version 1)
Quarter: 2022Q4

REPORT INFORMATION
  Report Type: Spontaneous
  Country: US (occurrence: US)
  Receive Date: 20221117
  Receipt Date: 20221117
  Transmission Date: 20230112
  Serious: No
  Sender: FDA-Public Use
  Company Number: US-BRISTOL-MYERS SQUIBB COMPANY-2022-139024

PATIENT
  Age: 70 Year
  Sex: Male

DRUGS (1)
  1. POMALYST [Suspect]
     Active Substance: POMALIDOMIDE
     Indication: Product used for unknown indication
     Dosage: 1 DF: 1 CAPSULE?FREQ: TAKE 1 CAPSULE BY MOUTH DAILY ON 1-21 THEN OFF 7 DAYS THEN REPEAT EVERY 28 DAY
     Route: 048

REACTIONS (1)
  - Fatigue [Unknown]
